FAERS Safety Report 5802099-4 (Version None)
Quarter: 2008Q3

REPORT INFORMATION
  Report Type: 
  Country: None (occurrence: None)
  Receive Date: 20080707
  Receipt Date: 20080626
  Transmission Date: 20090109
  Serious: Yes (Hospitalization)
  Sender: FDA-Public Use
  Company Number: PHHY2008JP12425

PATIENT
  Sex: Female

DRUGS (4)
  1. LUDIOMIL [Suspect]
     Dosage: UNK
     Route: 048
  2. TOLEDOMIN [Concomitant]
     Dosage: 25 MG UNK
     Route: 048
  3. DESYREL [Concomitant]
     Dosage: 25 MG UNK
     Route: 048
  4. SOLANAX [Concomitant]
     Dosage: 0.4 MG UNK
     Route: 048

REACTIONS (1)
  - BLOOD POTASSIUM DECREASED [None]
